FAERS Safety Report 5447373-9 (Version None)
Quarter: 2007Q3

REPORT INFORMATION
  Report Type: 
  Country: None (occurrence: None)
  Receive Date: 20070905
  Receipt Date: 20070905
  Transmission Date: 20080115
  Serious: Yes (Hospitalization)
  Sender: FDA-Public Use
  Company Number: None

PATIENT
  Sex: Female
  Weight: 76.7 kg

DRUGS (6)
  1. DAUNORUBICIN HCL [Suspect]
     Dosage: 62 MG
  2. METHOTREXATE [Suspect]
     Dosage: 15 MG
  3. PEG-L-ASPARAGINASE (K-H) [Suspect]
     Dosage: 4200 IU
  4. PREDNISONE TAB [Suspect]
     Dosage: 1880 MG
  5. VINCRISTINE SULFATE [Suspect]
     Dosage: 6 MG
  6. CYTARABINE [Suspect]
     Dosage: 70 MG

REACTIONS (9)
  - BLOOD CULTURE POSITIVE [None]
  - DIALYSIS [None]
  - DRUG TOXICITY [None]
  - FUNGAL INFECTION [None]
  - FUNGAL SKIN INFECTION [None]
  - GENERAL PHYSICAL HEALTH DETERIORATION [None]
  - MULTI-ORGAN FAILURE [None]
  - OROPHARYNGEAL CANDIDIASIS [None]
  - RESPIRATORY DISTRESS [None]
